FAERS Safety Report 8273536-3 (Version None)
Quarter: 2012Q2

REPORT INFORMATION
  Report Type: 
  Country: None (occurrence: None)
  Receive Date: 20120411
  Receipt Date: 20111230
  Transmission Date: 20120825
  Serious: No
  Sender: FDA-Public Use
  Company Number: US-TEVA-2011005848

PATIENT
  Sex: Female
  Weight: 61.29 kg

DRUGS (2)
  1. NUVIGIL [Suspect]
     Indication: NARCOLEPSY
     Dosage: 150 MILLIGRAM;
     Route: 048
     Dates: start: 20100501
  2. NUVIGIL [Suspect]
     Dosage: 200 MILLIGRAM;
     Route: 048

REACTIONS (3)
  - FEELING JITTERY [None]
  - DRUG INEFFECTIVE [None]
  - IRRITABILITY [None]
